FAERS Safety Report 9863652 (Version 2)
Quarter: 2017Q2

REPORT INFORMATION
  Report Type: Spontaneous
  Country: US (occurrence: US)
  Receive Date: 20140203
  Receipt Date: 20170417
  Transmission Date: 20170830
  Serious: Yes (Other)
  Sender: FDA-Public Use
  Company Number: US-BAYER-2014-014976

PATIENT
  Age: 23 Year
  Sex: Female
  Weight: 50 kg

DRUGS (2)
  1. ALKA-SELTZER PLUS COLD AND COUGH [Suspect]
     Active Substance: ACETAMINOPHEN\CHLORPHENIRAMINE\DEXTROMETHORPHAN\PHENYLEPHRINE
     Indication: VIRAL UPPER RESPIRATORY TRACT INFECTION
     Dosage: UNK UNK, ONCE
     Route: 048
     Dates: start: 20140124, end: 20140124
  2. BAYER GENUINE ASPIRIN [Suspect]
     Active Substance: ASPIRIN
     Route: 048

REACTIONS (3)
  - Respiratory arrest [None]
  - Dyspnoea [Recovered/Resolved]
  - Drug hypersensitivity [None]

NARRATIVE: CASE EVENT DATE: 2013
